FAERS Safety Report 18194182 (Version 3)
Quarter: 2020Q3

REPORT INFORMATION
  Report Type: Spontaneous
  Country: US (occurrence: US)
  Receive Date: 20200825
  Receipt Date: 20200921
  Transmission Date: 20201103
  Serious: No
  Sender: FDA-Public Use
  Company Number: US-PFIZER INC-2020326203

PATIENT
  Age: 7 Year
  Sex: Male

DRUGS (12)
  1. CANAKINUMAB. [Suspect]
     Active Substance: CANAKINUMAB
     Indication: INFLAMMATORY BOWEL DISEASE
     Dosage: UNK
  2. CANAKINUMAB. [Suspect]
     Active Substance: CANAKINUMAB
     Indication: GENE MUTATION
  3. TOCILIZUMAB. [Suspect]
     Active Substance: TOCILIZUMAB
     Indication: INFLAMMATORY BOWEL DISEASE
     Dosage: UNK
  4. TOCILIZUMAB. [Suspect]
     Active Substance: TOCILIZUMAB
     Indication: GENE MUTATION
  5. ANAKINRA [Suspect]
     Active Substance: ANAKINRA
     Indication: INFLAMMATORY BOWEL DISEASE
     Dosage: UNK
  6. METHOTREXATE SODIUM. [Suspect]
     Active Substance: METHOTREXATE SODIUM
     Indication: GENE MUTATION
     Dosage: UNK
     Dates: start: 20170504, end: 20170829
  7. SULFASALAZINE. [Suspect]
     Active Substance: SULFASALAZINE
     Indication: INFLAMMATORY BOWEL DISEASE
  8. ETANERCEPT [Suspect]
     Active Substance: ETANERCEPT
     Indication: INFLAMMATORY BOWEL DISEASE
     Dosage: UNK
  9. SULFASALAZINE. [Suspect]
     Active Substance: SULFASALAZINE
     Indication: GENE MUTATION
     Dosage: UNK
     Dates: start: 20170610, end: 20170905
  10. ETANERCEPT [Suspect]
     Active Substance: ETANERCEPT
     Indication: GENE MUTATION
  11. METHOTREXATE SODIUM. [Suspect]
     Active Substance: METHOTREXATE SODIUM
     Indication: INFLAMMATORY BOWEL DISEASE
     Dosage: 7.5 MG, WEEKLY
     Route: 048
     Dates: start: 201705, end: 20171025
  12. ANAKINRA [Suspect]
     Active Substance: ANAKINRA
     Indication: GENE MUTATION

REACTIONS (2)
  - Drug ineffective for unapproved indication [Unknown]
  - Off label use [Unknown]
